FAERS Safety Report 22199359 (Version 3)
Quarter: 2023Q2

REPORT INFORMATION
  Report Type: Spontaneous
  Country: GB (occurrence: GB)
  Receive Date: 20230411
  Receipt Date: 20230523
  Transmission Date: 20230722
  Serious: Yes (Hospitalization, Other)
  Sender: FDA-Public Use
  Company Number: None

PATIENT
  Age: 26 Year
  Sex: Female

DRUGS (2)
  1. QUETIAPINE FUMARATE [Suspect]
     Active Substance: QUETIAPINE FUMARATE
     Indication: Mood swings
     Dosage: 800 MILLIGRAM (CAPSULE)
     Route: 048
     Dates: end: 20220829
  2. QUETIAPINE FUMARATE [Suspect]
     Active Substance: QUETIAPINE FUMARATE
     Dosage: UNK (DOSE INCREASED)
     Route: 065

REACTIONS (14)
  - Aphasia [Unknown]
  - Urinary incontinence [Unknown]
  - Anal incontinence [Unknown]
  - Mutism [Unknown]
  - Catatonia [Unknown]
  - Mental disorder [Unknown]
  - Neuromyopathy [Unknown]
  - Muscle rigidity [Recovering/Resolving]
  - Product prescribing issue [Unknown]
  - Pyrexia [Unknown]
  - Tremor [Unknown]
  - Hyperhidrosis [Unknown]
  - Restlessness [Unknown]
  - Tachycardia [Unknown]

NARRATIVE: CASE EVENT DATE: 20220801
